FAERS Safety Report 9594357 (Version 1)
Quarter: 2013Q3

REPORT INFORMATION
  Report Type: Spontaneous
  Country: US (occurrence: None)
  Receive Date: 20130923
  Receipt Date: 20130923
  Transmission Date: 20140515
  Serious: Yes (Death)
  Sender: FDA-Public Use
  Company Number: 2013STPI000096

PATIENT
  Age: 78 Year
  Sex: 0

DRUGS (3)
  1. MATULANE [Suspect]
     Indication: HODGKIN^S DISEASE LYMPHOCYTE PREDOMINANCE TYPE STAGE UNSPECIFIED
     Route: 048
     Dates: start: 20130207, end: 20130309
  2. CYTOXAN (CYCLOPHOSPHAMIDE) [Concomitant]
  3. ONCOVIN (VINCRISTINE SULFATE) [Concomitant]

REACTIONS (1)
  - Disease progression [None]
